FAERS Safety Report 19405954 (Version 1)
Quarter: 2021Q2

REPORT INFORMATION
  Report Type: Spontaneous
  Country: BR (occurrence: BR)
  Receive Date: 20210611
  Receipt Date: 20210611
  Transmission Date: 20210717
  Serious: Yes (Other)
  Sender: FDA-Public Use
  Company Number: BR-ABBVIE-21K-020-3943347-00

PATIENT
  Age: 34 Year
  Sex: Male
  Weight: 81 kg

DRUGS (6)
  1. DONAREN [Suspect]
     Active Substance: TRAZODONE HYDROCHLORIDE
     Indication: PRODUCT USED FOR UNKNOWN INDICATION
     Dosage: UNSPECIFIED DOSE
     Route: 065
     Dates: start: 20210424, end: 2021
  2. SOMALIUM [Concomitant]
     Active Substance: BROMAZEPAM
     Indication: SLEEP DISORDER THERAPY
     Dosage: UNSPECIFIED DOSE?TAKE HALF MEDICINE AT NIGHT
     Route: 048
     Dates: start: 20210524
  3. HUMIRA [Suspect]
     Active Substance: ADALIMUMAB
     Indication: ANKYLOSING SPONDYLITIS
     Route: 058
     Dates: start: 202003
  4. COVID?19 VACCINE [Concomitant]
     Indication: COVID-19 IMMUNISATION
     Dosage: ASTRAZENECA
     Route: 030
     Dates: start: 20210602, end: 20210602
  5. VENLAXIN [Suspect]
     Active Substance: VENLAFAXINE HYDROCHLORIDE
     Indication: PRODUCT USED FOR UNKNOWN INDICATION
     Dosage: UNSPECIFIED DOSE
     Route: 065
     Dates: start: 202105, end: 2021
  6. FOSTAIR [Concomitant]
     Active Substance: BECLOMETHASONE\FORMOTEROL
     Indication: ASTHMA
     Dosage: 100/6MCG
     Route: 065

REACTIONS (14)
  - Heart rate increased [Recovered/Resolved]
  - Shock [Unknown]
  - Rhinitis allergic [Unknown]
  - Anxiety [Recovered/Resolved]
  - Pericarditis [Unknown]
  - Panic reaction [Recovered/Resolved]
  - Somnolence [Unknown]
  - Depression [Unknown]
  - COVID-19 [Recovered/Resolved]
  - Malaise [Unknown]
  - Pericardial effusion [Recovering/Resolving]
  - Hallucination [Recovered/Resolved]
  - Cardiac disorder [Unknown]
  - COVID-19 [Recovered/Resolved]

NARRATIVE: CASE EVENT DATE: 20210106
